FAERS Safety Report 6773652-9 (Version None)
Quarter: 2010Q2

REPORT INFORMATION
  Report Type: 
  Country: None (occurrence: None)
  Receive Date: 20100615
  Receipt Date: 20100615
  Transmission Date: 20101027
  Serious: No
  Sender: FDA-Public Use
  Company Number: None

PATIENT
  Sex: Male
  Weight: 84.369 kg

DRUGS (2)
  1. ZICAM NASAL GEL .5 FL OZ MATRIXX [Suspect]
     Indication: NASAL CONGESTION
     Dosage: 1 SQUIRT EA NOSTRIL ONCE A DAY NASAL
     Route: 045
     Dates: start: 20100521, end: 20100611
  2. FLONASE [Concomitant]

REACTIONS (2)
  - ANOSMIA [None]
  - DRUG INEFFECTIVE [None]
